FAERS Safety Report 9412441 (Version 3)
Quarter: 2014Q2

REPORT INFORMATION
  Report Type: Spontaneous
  Country: CA (occurrence: CA)
  Receive Date: 20130722
  Receipt Date: 20140407
  Transmission Date: 20141212
  Serious: Yes (Hospitalization, Other)
  Sender: FDA-Public Use
  Company Number: CA-MERCK-1307CAN011138

PATIENT
  Age: 5 Decade
  Sex: Female

DRUGS (2)
  1. SAPHRIS [Suspect]
     Dosage: 1.25 MG, UNK
     Route: 048
  2. CIPRALEX [Suspect]
     Dosage: 5 MG, UNK
     Route: 048
     Dates: end: 2013

REACTIONS (3)
  - Angle closure glaucoma [Unknown]
  - Underdose [Unknown]
  - Inappropriate schedule of drug administration [Unknown]
